FAERS Safety Report 7582773-2 (Version None)
Quarter: 2011Q2

REPORT INFORMATION
  Report Type: 
  Country: None (occurrence: None)
  Receive Date: 20110630
  Receipt Date: 20110617
  Transmission Date: 20111010
  Serious: Yes (Hospitalization, Other)
  Sender: FDA-Public Use
  Company Number: US-BAYER-2011-030570

PATIENT
  Age: 20 Year
  Sex: Female
  Weight: 52.154 kg

DRUGS (3)
  1. YASMIN [Suspect]
     Indication: MENORRHAGIA
     Dosage: UNK
     Dates: start: 20050701, end: 20070401
  2. YASMIN [Suspect]
     Indication: DYSMENORRHOEA
  3. ZOLOFT [Concomitant]
     Indication: ANXIETY DISORDER
     Dosage: 50 MG, QD
     Route: 048
     Dates: start: 20061209

REACTIONS (6)
  - DEEP VEIN THROMBOSIS [None]
  - PULMONARY EMBOLISM [None]
  - ANXIETY [None]
  - INSOMNIA [None]
  - GROIN PAIN [None]
  - DYSPNOEA [None]
